FAERS Safety Report 5572452-5 (Version None)
Quarter: 2007Q4

REPORT INFORMATION
  Report Type: 
  Country: None (occurrence: None)
  Receive Date: 20071219
  Receipt Date: 20071213
  Transmission Date: 20080405
  Serious: Yes (Death, Hospitalization, Other)
  Sender: FDA-Public Use
  Company Number: 083-C5013-07120749

PATIENT
  Age: 71 Year
  Sex: Female
  Weight: 70 kg

DRUGS (5)
  1. CC-5013 (LENALIDOMIDE) (CAPSULES) [Suspect]
     Indication: MULTIPLE MYELOMA
     Dosage: 10 MG, DAILY; ORAL
     Route: 048
     Dates: start: 20071022, end: 20071103
  2. DEXAMETHASONE TAB [Concomitant]
  3. ERYTHROPOETIN (EPOETIN ALFA) [Concomitant]
  4. ASPIRIN [Concomitant]
  5. TAVANIC (LEVOFLOXACIN) [Concomitant]

REACTIONS (3)
  - MALIGNANT NEOPLASM PROGRESSION [None]
  - MULTIPLE MYELOMA [None]
  - RENAL FAILURE [None]
